FAERS Safety Report 21110673 (Version 1)
Quarter: 2022Q3

REPORT INFORMATION
  Report Type: Spontaneous
  Country: US (occurrence: US)
  Receive Date: 20220721
  Receipt Date: 20220721
  Transmission Date: 20221027
  Serious: Yes (Death, Life-Threatening, Hospitalization)
  Sender: FDA-Public Use
  Company Number: US-STRIDES ARCOLAB LIMITED-2022SP009151

PATIENT
  Age: 67 Year
  Sex: Male

DRUGS (9)
  1. DEXAMETHASONE [Suspect]
     Active Substance: DEXAMETHASONE
     Indication: COVID-19 pneumonia
     Dosage: UNK
     Route: 065
  2. DEXAMETHASONE [Suspect]
     Active Substance: DEXAMETHASONE
     Dosage: UNK
     Route: 065
  3. TACROLIMUS [Suspect]
     Active Substance: TACROLIMUS
     Indication: Renal transplant
     Dosage: UNK
     Route: 065
  4. METHYLPREDNISOLONE [Suspect]
     Active Substance: METHYLPREDNISOLONE
     Indication: Renal transplant
     Dosage: UNK
     Route: 065
  5. COVID-19 CONVALESCENT PLASMA [Suspect]
     Active Substance: COVID-19 CONVALESCENT PLASMA
     Indication: COVID-19 pneumonia
     Dosage: UNK
     Route: 065
  6. REMDESIVIR [Suspect]
     Active Substance: REMDESIVIR
     Indication: COVID-19 pneumonia
     Dosage: UNK
     Route: 065
  7. MIGALASTAT [Concomitant]
     Active Substance: MIGALASTAT
     Indication: Fabry^s disease
     Dosage: UNK, (ON ALTERNATE DAYS AS ENZYME REPLACEMENT THERAPY)
     Route: 048
  8. METFORMIN [Concomitant]
     Active Substance: METFORMIN HYDROCHLORIDE
     Indication: Type 2 diabetes mellitus
     Dosage: UNK
     Route: 065
  9. PIOGLITAZONE [Concomitant]
     Active Substance: PIOGLITAZONE
     Indication: Type 2 diabetes mellitus
     Dosage: UNK
     Route: 065

REACTIONS (8)
  - Bronchopulmonary aspergillosis [Fatal]
  - Isosporiasis [Fatal]
  - Cytomegalovirus infection [Fatal]
  - Infection reactivation [Fatal]
  - Respiratory failure [Fatal]
  - Sepsis [Unknown]
  - COVID-19 pneumonia [Unknown]
  - Drug ineffective for unapproved indication [Unknown]
